FAERS Safety Report 10236195 (Version 1)
Quarter: 2014Q2

REPORT INFORMATION
  Report Type: Spontaneous
  Country: US (occurrence: None)
  Receive Date: 20140612
  Receipt Date: 20140612
  Transmission Date: 20141212
  Serious: Yes (Hospitalization)
  Sender: FDA-Public Use
  Company Number: None

PATIENT
  Age: 74 Year
  Sex: Female

DRUGS (11)
  1. XARELTO 15MG JANSSEN [Suspect]
     Indication: ATRIAL FIBRILLATION
     Route: 048
     Dates: end: 20140129
  2. ZOCOR [Concomitant]
  3. XARELTO [Concomitant]
  4. LEVOTHYROXCINE [Concomitant]
  5. CALCITRIOL [Concomitant]
  6. LASIX [Concomitant]
  7. AMIODARONE [Concomitant]
  8. SODIUM BICARBONATE [Concomitant]
  9. VITAMIN D [Concomitant]
  10. ASPIRIN [Concomitant]
  11. COREG [Concomitant]

REACTIONS (1)
  - Lower gastrointestinal haemorrhage [None]
